FAERS Safety Report 4684665-5 (Version None)
Quarter: 2005Q2

REPORT INFORMATION
  Report Type: 
  Country: None (occurrence: None)
  Receive Date: 20050603
  Receipt Date: 20050520
  Transmission Date: 20051028
  Serious: Yes (Death, Hospitalization)
  Sender: FDA-Public Use
  Company Number: A-CH2005-09832

PATIENT
  Age: 43 Year
  Sex: Female

DRUGS (2)
  1. TRACLEER [Suspect]
     Indication: PULMONARY HYPERTENSION
     Dosage: ORAL
     Route: 048
     Dates: start: 20020101
  2. EPOPROSTENOL (EPOPROSTENOL) [Concomitant]

REACTIONS (7)
  - CARDIAC FAILURE [None]
  - CATHETER RELATED INFECTION [None]
  - CONDITION AGGRAVATED [None]
  - FLUID OVERLOAD [None]
  - PULMONARY HYPERTENSION [None]
  - RENAL FAILURE [None]
  - TREATMENT NONCOMPLIANCE [None]
